FAERS Safety Report 8419135-1 (Version None)
Quarter: 2012Q2

REPORT INFORMATION
  Report Type: 
  Country: None (occurrence: None)
  Receive Date: 20120607
  Receipt Date: 20120531
  Transmission Date: 20120825
  Serious: Yes (Other)
  Sender: FDA-Public Use
  Company Number: GB-PFIZER INC-2011316925

PATIENT
  Age: 70 Year
  Sex: Female
  Weight: 77.5 kg

DRUGS (5)
  1. AMLODIPINE BESYLATE [Suspect]
     Dosage: 10 MG, DAILY
     Dates: end: 20111001
  2. AMLODIPINE BESYLATE [Suspect]
     Dosage: 5 MG, 1X/DAY
     Dates: start: 20111001, end: 20111111
  3. CANDESARTAN [Concomitant]
     Indication: ESSENTIAL HYPERTENSION
     Dosage: 32 MG, DAILY
     Route: 048
     Dates: start: 20060612
  4. BENDROFLUMETHIAZIDE [Concomitant]
     Indication: ESSENTIAL HYPERTENSION
     Dosage: 2.5 MG, 1X/DAY
     Route: 048
     Dates: start: 20110601
  5. AMLODIPINE BESYLATE [Suspect]
     Indication: ESSENTIAL HYPERTENSION
     Dosage: 5 MG, DAILY
     Route: 048
     Dates: start: 20051221

REACTIONS (5)
  - CELLULITIS [None]
  - OEDEMA PERIPHERAL [None]
  - DERMATOSIS [None]
  - DERMATITIS [None]
  - ULCER [None]
